FAERS Safety Report 12738263 (Version 2)
Quarter: 2016Q4

REPORT INFORMATION
  Report Type: Report from Study
  Country: None (occurrence: NL)
  Receive Date: 20160913
  Receipt Date: 20161108
  Transmission Date: 20170207
  Serious: Yes (Death, Hospitalization, Other)
  Sender: FDA-Public Use
  Company Number: NL-ABBVIE-16P-114-1724640-00

PATIENT
  Age: 62 Year
  Sex: Male

DRUGS (1)
  1. DUODOPA [Suspect]
     Active Substance: CARBIDOPA\LEVODOPA
     Indication: PARKINSON^S DISEASE
     Dosage: MORNING DOSE: 5.0 CONTINUOUS DOSE: 3.1 EXTRA DOSE: 1.6 NIGHT DOSE: 2.3
     Route: 050
     Dates: start: 20150729

REACTIONS (8)
  - Hallucination [Unknown]
  - General physical health deterioration [Fatal]
  - Hypophagia [Fatal]
  - Dopamine dysregulation syndrome [Recovered/Resolved with Sequelae]
  - Pulmonary embolism [Recovered/Resolved with Sequelae]
  - Dopamine dysregulation syndrome [Recovered/Resolved with Sequelae]
  - Pneumonia [Recovered/Resolved with Sequelae]
  - Dopamine dysregulation syndrome [Recovered/Resolved with Sequelae]

NARRATIVE: CASE EVENT DATE: 201507
